FAERS Safety Report 4296062-5 (Version None)
Quarter: 2004Q1

REPORT INFORMATION
  Report Type: 
  Country: None (occurrence: None)
  Receive Date: 20040212
  Receipt Date: 20040209
  Transmission Date: 20041129
  Serious: Yes (Hospitalization)
  Sender: FDA-Public Use
  Company Number: 200410348GDS

PATIENT
  Age: 78 Year
  Sex: Female

DRUGS (11)
  1. ASPIRIN CARDIO (ACETYLSALICYLIC ACID) [Suspect]
     Indication: PROPHYLAXIS
     Dosage: 100 MG, QD, ORAL
     Route: 048
     Dates: end: 20040111
  2. FLUOX BASAN (FLUOXETINE) [Suspect]
     Indication: DEPRESSION
     Dosage: QOD, ORAL
     Route: 048
     Dates: end: 20040111
  3. SINTROM [Suspect]
     Indication: ATRIAL FIBRILLATION
     Dosage: PRN, ORAL
     Route: 048
     Dates: end: 20040111
  4. DIGOXIN [Concomitant]
  5. HYGROTON [Concomitant]
  6. POTASSIUM [Concomitant]
  7. RANITIDINE MEPHA [Concomitant]
  8. TOREM [Concomitant]
  9. VIOXX [Concomitant]
  10. INSULIN [Concomitant]
  11. EPRIL [Concomitant]

REACTIONS (8)
  - ANAEMIA [None]
  - GASTROINTESTINAL HAEMORRHAGE [None]
  - HEART RATE IRREGULAR [None]
  - INTERNATIONAL NORMALISED RATIO INCREASED [None]
  - MELAENA [None]
  - OVERDOSE [None]
  - PROTHROMBIN TIME PROLONGED [None]
  - SHOCK HAEMORRHAGIC [None]
